FAERS Safety Report 15956612 (Version 1)
Quarter: 2019Q1

REPORT INFORMATION
  Report Type: Spontaneous
  Country: US (occurrence: US)
  Receive Date: 20190122
  Receipt Date: 20190122
  Transmission Date: 20190417
  Serious: Yes (Hospitalization)
  Sender: FDA-Public Use
  Company Number: None

PATIENT
  Age: 42 Year
  Sex: Male
  Weight: 121 kg

DRUGS (2)
  1. 5-FLUOROURACIL (5-FU) [Suspect]
     Active Substance: FLUOROURACIL
     Dates: end: 20190108
  2. ELOXATIN [Suspect]
     Active Substance: OXALIPLATIN
     Dates: end: 20190108

REACTIONS (4)
  - Ejection fraction decreased [None]
  - Troponin increased [None]
  - Vomiting [None]
  - Chest pain [None]

NARRATIVE: CASE EVENT DATE: 20190110
